FAERS Safety Report 16595058 (Version 6)
Quarter: 2019Q3

REPORT INFORMATION
  Report Type: Report from Study
  Country: US (occurrence: US)
  Receive Date: 20190718
  Receipt Date: 20190920
  Transmission Date: 20191004
  Serious: Yes (Hospitalization)
  Sender: FDA-Public Use
  Company Number: US-ACTELION-A-NJ2019-192617

PATIENT
  Sex: Female
  Weight: 60.32 kg

DRUGS (11)
  1. LASIX [Concomitant]
     Active Substance: FUROSEMIDE
     Dosage: 20 MG, QD
     Route: 048
     Dates: start: 201906
  2. OXYGEN. [Concomitant]
     Active Substance: OXYGEN
  3. UPTRAVI [Suspect]
     Active Substance: SELEXIPAG
     Indication: PULMONARY ARTERIAL HYPERTENSION
     Dosage: 200 UNK
     Route: 048
     Dates: start: 20190705
  4. TADALAFIL. [Concomitant]
     Active Substance: TADALAFIL
     Dosage: 20 MG, QD
     Route: 048
     Dates: start: 201904, end: 20190705
  5. UPTRAVI [Suspect]
     Active Substance: SELEXIPAG
     Dosage: 200 MCG, BID
     Route: 048
     Dates: start: 201906
  6. UPTRAVI [Suspect]
     Active Substance: SELEXIPAG
     Dosage: 200 MCG, QD
     Route: 048
  7. BUMETANIDE. [Concomitant]
     Active Substance: BUMETANIDE
     Dosage: 1 MG, QD
     Dates: start: 201907
  8. LORATADINE. [Concomitant]
     Active Substance: LORATADINE
     Dosage: 5 MG, QD
     Route: 048
  9. OPSUMIT [Suspect]
     Active Substance: MACITENTAN
     Indication: PULMONARY ARTERIAL HYPERTENSION
     Dosage: 10 MG, QD
     Route: 048
     Dates: start: 20190307
  10. LASIX [Concomitant]
     Active Substance: FUROSEMIDE
     Dosage: 40 MG, QD
  11. AMLODIPINE [Concomitant]
     Active Substance: AMLODIPINE BESYLATE
     Dosage: 7.5 MG, QD
     Route: 048
     Dates: start: 201904

REACTIONS (21)
  - Condition aggravated [Unknown]
  - Muscular weakness [Recovering/Resolving]
  - Fluid retention [Unknown]
  - Blood creatinine increased [Unknown]
  - Blood phosphorus increased [Unknown]
  - Palpitations [Unknown]
  - Pneumonia [Unknown]
  - Anaemia [Unknown]
  - Neutrophil count increased [Unknown]
  - Metabolic acidosis [Unknown]
  - Dizziness [Unknown]
  - Blood albumin decreased [Unknown]
  - Blood bicarbonate decreased [Unknown]
  - Dyspnoea [Unknown]
  - Asthenia [Recovered/Resolved]
  - Blood potassium increased [Unknown]
  - Renal impairment [Unknown]
  - Cor pulmonale [Unknown]
  - Peripheral swelling [Unknown]
  - Blood urea increased [Unknown]
  - Glomerular filtration rate decreased [Unknown]
